FAERS Safety Report 4418736-5 (Version None)
Quarter: 2004Q3

REPORT INFORMATION
  Report Type: 
  Country: None (occurrence: None)
  Receive Date: 20040805
  Receipt Date: 20040730
  Transmission Date: 20050211
  Serious: Yes (Hospitalization)
  Sender: FDA-Public Use
  Company Number: 2004UW15866

PATIENT
  Age: 59 Year
  Sex: Female

DRUGS (4)
  1. CRESTOR [Suspect]
     Dosage: 10 MG PO
     Route: 048
     Dates: start: 20040609
  2. LASIX [Suspect]
     Dosage: 40 MG
     Dates: start: 20040609
  3. PREVACID [Concomitant]
  4. FOSAMAX [Concomitant]

REACTIONS (1)
  - STEVENS-JOHNSON SYNDROME [None]
